FAERS Safety Report 4820353-X (Version None)
Quarter: 2005Q4

REPORT INFORMATION
  Report Type: 
  Country: None (occurrence: None)
  Receive Date: 20051104
  Receipt Date: 20051008
  Transmission Date: 20060501
  Serious: Yes (Other)
  Sender: FDA-Public Use
  Company Number: 2005PK02004

PATIENT
  Age: 67 Year
  Sex: Female

DRUGS (1)
  1. CARBOSTESIN 0.5% HYPERBAR [Suspect]
     Indication: ANAESTHESIA

REACTIONS (5)
  - DIPLEGIA [None]
  - HYPERSENSITIVITY [None]
  - IMMUNE SYSTEM DISORDER [None]
  - PERIPHERAL NERVE PALSY [None]
  - SPINAL CORD DISORDER [None]
